FAERS Safety Report 10549455 (Version 4)
Quarter: 2015Q2

REPORT INFORMATION
  Report Type: Spontaneous
  Country: US (occurrence: US)
  Receive Date: 20141028
  Receipt Date: 20150430
  Transmission Date: 20150821
  Serious: Yes (Hospitalization, Other)
  Sender: FDA-Public Use
  Company Number: US-BAYER-2014-156227

PATIENT
  Age: 38 Year
  Sex: Female
  Weight: 113 kg

DRUGS (2)
  1. MIRENA [Suspect]
     Active Substance: LEVONORGESTREL
     Indication: CONTRACEPTION
     Dosage: 20 MCG/24HR, CONT
     Route: 015
     Dates: start: 20050106, end: 20051115
  2. MIRENA [Suspect]
     Active Substance: LEVONORGESTREL
     Indication: CONTRACEPTION
     Dosage: 20 MCG/24HR, CONT
     Route: 015
     Dates: start: 20051115, end: 20070501

REACTIONS (14)
  - Uterine perforation [None]
  - Post procedural discomfort [Not Recovered/Not Resolved]
  - Anxiety [None]
  - Procedural pain [Not Recovered/Not Resolved]
  - Uterine prolapse [None]
  - Uterine cervical laceration [None]
  - Pelvic pain [None]
  - Emotional distress [None]
  - Depression [Not Recovered/Not Resolved]
  - Infertility female [None]
  - Injury [None]
  - Pelvic discomfort [None]
  - Pain [None]
  - Psychological trauma [Not Recovered/Not Resolved]

NARRATIVE: CASE EVENT DATE: 20051115
